FAERS Safety Report 9943145 (Version 4)
Quarter: 2014Q3

REPORT INFORMATION
  Report Type: Spontaneous
  Country: US (occurrence: US)
  Receive Date: 20140303
  Receipt Date: 20140723
  Transmission Date: 20150326
  Serious: Yes (Other)
  Sender: FDA-Public Use
  Company Number: US-GLAXOSMITHKLINE-A1061920A

PATIENT
  Age: 54 Year
  Sex: Female

DRUGS (18)
  1. FLOVENT [Suspect]
     Active Substance: FLUTICASONE PROPIONATE
     Indication: ASTHMA
     Dosage: 2PUFF TWICE PER DAY
     Route: 055
     Dates: start: 20140606
  2. VITAMIN C [Concomitant]
     Active Substance: ASCORBIC ACID
  3. CLARITIN [Concomitant]
     Active Substance: LORATADINE
  4. NAPROXEN. [Concomitant]
     Active Substance: NAPROXEN
  5. PERTUSSIN [Concomitant]
  6. LISINOPRIL. [Concomitant]
     Active Substance: LISINOPRIL
  7. LORATADINE. [Concomitant]
     Active Substance: LORATADINE
  8. BENZONATATE. [Concomitant]
     Active Substance: BENZONATATE
  9. LEVOTHYROXINE [Concomitant]
     Active Substance: LEVOTHYROXINE
  10. TUSSIN-DM [Concomitant]
  11. HYDROCODONE, ACETAMINOPHEN [Concomitant]
     Active Substance: ACETAMINOPHEN\HYDROCODONE BITARTRATE
  12. VENTOLIN [Suspect]
     Active Substance: ALBUTEROL SULFATE
     Indication: ASTHMA
     Dosage: 2PUFF AS REQUIRED
     Route: 055
     Dates: start: 1998
  13. ALBUTEROL NEBULIZER [Concomitant]
     Active Substance: ALBUTEROL
  14. BENADRYL [Concomitant]
     Active Substance: DIPHENHYDRAMINE HYDROCHLORIDE
  15. ADVAIR HFA [Suspect]
     Active Substance: FLUTICASONE PROPIONATE\SALMETEROL XINAFOATE
     Indication: ASTHMA
     Dosage: 1PUFF TWICE PER DAY
     Route: 055
     Dates: start: 20140219, end: 20140220
  16. TYLENOL [Concomitant]
     Active Substance: ACETAMINOPHEN
  17. MUCINEX DM [Concomitant]
     Active Substance: DEXTROMETHORPHAN HYDROBROMIDE\GUAIFENESIN
  18. MULTIVITAMIN [Concomitant]
     Active Substance: VITAMINS

REACTIONS (30)
  - Fall [Recovered/Resolved]
  - Flushing [Unknown]
  - Insomnia [Recovering/Resolving]
  - Asthma [Recovering/Resolving]
  - Otorrhoea [Unknown]
  - Drug hypersensitivity [Unknown]
  - Post-traumatic stress disorder [Recovering/Resolving]
  - Movement disorder [Not Recovered/Not Resolved]
  - Sinus disorder [Not Recovered/Not Resolved]
  - Vaginal discharge [Not Recovered/Not Resolved]
  - Blood urine present [Recovering/Resolving]
  - Exostosis [Unknown]
  - Bronchitis [Recovering/Resolving]
  - Cough [Recovering/Resolving]
  - Back pain [Not Recovered/Not Resolved]
  - Urinary tract infection [Recovering/Resolving]
  - Chronic obstructive pulmonary disease [Recovering/Resolving]
  - Musculoskeletal disorder [Not Recovered/Not Resolved]
  - Candida infection [Recovering/Resolving]
  - Pain [Recovering/Resolving]
  - Cystitis [Unknown]
  - Osteoarthritis [Unknown]
  - Post-traumatic neck syndrome [Unknown]
  - Dysuria [Not Recovered/Not Resolved]
  - Muscle spasms [Not Recovered/Not Resolved]
  - Pain in extremity [Not Recovered/Not Resolved]
  - Radius fracture [Recovered/Resolved]
  - Vaginal odour [Not Recovered/Not Resolved]
  - Oral mucosal blistering [Recovering/Resolving]
  - Stress [Recovering/Resolving]

NARRATIVE: CASE EVENT DATE: 2013
